FAERS Safety Report 6434634-X (Version None)
Quarter: 2009Q4

REPORT INFORMATION
  Report Type: 
  Country: None (occurrence: None)
  Receive Date: 20091110
  Receipt Date: 20091106
  Transmission Date: 20100525
  Serious: Yes (Hospitalization)
  Sender: FDA-Public Use
  Company Number: B0602396A

PATIENT
  Age: 14 Year
  Sex: Female

DRUGS (2)
  1. AUGMENTIN [Suspect]
     Indication: DRUG USE FOR UNKNOWN INDICATION
     Route: 065
  2. HEXETIDINE [Concomitant]
     Route: 065

REACTIONS (4)
  - AURICULAR SWELLING [None]
  - FACE OEDEMA [None]
  - RASH [None]
  - URTICARIA [None]
